FAERS Safety Report 12502117 (Version 1)
Quarter: 2016Q2

REPORT INFORMATION
  Report Type: Spontaneous
  Country: US (occurrence: US)
  Receive Date: 20160627
  Receipt Date: 20160627
  Transmission Date: 20160815
  Serious: Yes (Death, Hospitalization)
  Sender: FDA-Public Use
  Company Number: US-ABBVIE-16P-163-1661832-00

PATIENT
  Age: 55 Year
  Sex: Male

DRUGS (3)
  1. CIPRO [Concomitant]
     Active Substance: CIPROFLOXACIN HYDROCHLORIDE
     Indication: INFECTION PROPHYLAXIS
  2. VENCLEXTA [Suspect]
     Active Substance: VENETOCLAX
     Route: 048
  3. VENCLEXTA [Suspect]
     Active Substance: VENETOCLAX
     Indication: CHRONIC LYMPHOCYTIC LEUKAEMIA
     Route: 048
     Dates: start: 20160510

REACTIONS (3)
  - Pneumonia [Fatal]
  - Febrile neutropenia [Fatal]
  - Neutropenia [Unknown]

NARRATIVE: CASE EVENT DATE: 201606
